FAERS Safety Report 4969463-7 (Version None)
Quarter: 2006Q1

REPORT INFORMATION
  Report Type: 
  Country: None (occurrence: None)
  Receive Date: 20060330
  Receipt Date: 20060320
  Transmission Date: 20060701
  Serious: Yes (Other)
  Sender: FDA-Public Use
  Company Number: 200610054BBE

PATIENT
  Age: 17 Year
  Sex: Male

DRUGS (6)
  1. GAMUNEX [Suspect]
     Indication: IMMUNODEFICIENCY COMMON VARIABLE
     Dosage: 30 + 40G, TOTAL DAILY, INTRAVENOUS
     Route: 042
     Dates: start: 20041110
  2. GAMUNEX [Suspect]
  3. GAMUNEX [Suspect]
  4. GAMUNEX [Suspect]
  5. GAMMAR-P I.V. [Concomitant]
  6. FLONASE [Concomitant]

REACTIONS (2)
  - HEPATITIS B [None]
  - HEPATITIS B CORE ANTIGEN POSITIVE [None]
